FAERS Safety Report 5926902-2 (Version None)
Quarter: 2008Q4

REPORT INFORMATION
  Report Type: 
  Country: None (occurrence: None)
  Receive Date: 20081017
  Receipt Date: 20081008
  Transmission Date: 20090506
  Serious: Yes (Death, Hospitalization)
  Sender: FDA-Public Use
  Company Number: 2008AL004101

PATIENT
  Age: 75 Year
  Sex: Male
  Weight: 73.4827 kg

DRUGS (22)
  1. DIGOXIN [Suspect]
     Dosage: 0.25 MG, DAILY, PO
     Route: 048
     Dates: start: 20070214, end: 20071113
  2. DIGOXIN [Suspect]
     Dosage: 0.125 MG, DAILY, PO
     Route: 048
     Dates: start: 20071114, end: 20080404
  3. SINGULAIR [Suspect]
     Dosage: 10 MG DAILY
     Dates: start: 20070304
  4. AMOXICILLIN [Concomitant]
  5. ACETAMINOPHEN [Concomitant]
  6. ASPIRIN [Concomitant]
  7. NIASPAN [Concomitant]
  8. FUROSEMIDE [Concomitant]
  9. IMDUR [Concomitant]
  10. METOPROLOL SUCCINATE [Concomitant]
  11. SPIRONOLACTONE [Concomitant]
  12. VALSARTAN [Concomitant]
  13. NASACORT [Concomitant]
  14. LEVAQUIN [Concomitant]
  15. LISINOPRIL [Concomitant]
  16. FLOMAX [Concomitant]
  17. SINGULAIR [Concomitant]
  18. BACTRIM [Concomitant]
  19. BENADRYL [Concomitant]
  20. DECOMPEDROL [Concomitant]
  21. METHYLPREDNISOLONE 16MG TAB [Concomitant]
  22. ZETIA [Concomitant]

REACTIONS (44)
  - ACUTE MYOCARDIAL INFARCTION [None]
  - ANOREXIA [None]
  - ASCITES [None]
  - BACK PAIN [None]
  - BLOOD CHOLESTEROL INCREASED [None]
  - BLOOD TRIGLYCERIDES INCREASED [None]
  - CARDIAC FAILURE [None]
  - CARDIO-RESPIRATORY ARREST [None]
  - CONSTIPATION [None]
  - COUGH [None]
  - CYANOSIS [None]
  - DIZZINESS [None]
  - DRUG HYPERSENSITIVITY [None]
  - ESCHERICHIA URINARY TRACT INFECTION [None]
  - EYE PRURITUS [None]
  - FALL [None]
  - FEELING COLD [None]
  - HAEMORRHAGE [None]
  - HEAD INJURY [None]
  - HYDRONEPHROSIS [None]
  - HYPERLIPIDAEMIA [None]
  - HYPERTENSION [None]
  - HYPOTENSION [None]
  - ILL-DEFINED DISORDER [None]
  - INCORRECT DOSE ADMINISTERED [None]
  - ISCHAEMIC CARDIOMYOPATHY [None]
  - LACERATION [None]
  - LIVEDO RETICULARIS [None]
  - NASAL DRYNESS [None]
  - OBSTRUCTIVE UROPATHY [None]
  - PAIN [None]
  - PERIORBITAL OEDEMA [None]
  - PUPIL FIXED [None]
  - RASH [None]
  - REFUSAL OF TREATMENT BY PATIENT [None]
  - RENAL FAILURE ACUTE [None]
  - RHINITIS ALLERGIC [None]
  - SWELLING FACE [None]
  - SYNCOPE [None]
  - TREATMENT NONCOMPLIANCE [None]
  - UNRESPONSIVE TO STIMULI [None]
  - URINARY RETENTION [None]
  - WEIGHT DECREASED [None]
  - WHEEZING [None]
